FAERS Safety Report 4910939-6 (Version None)
Quarter: 2006Q1

REPORT INFORMATION
  Report Type: 
  Country: None (occurrence: None)
  Receive Date: 20060214
  Receipt Date: 20050107
  Transmission Date: 20060701
  Serious: Yes (Hospitalization, Disabling, Other)
  Sender: FDA-Public Use
  Company Number: US-MERCK-0501USA01803

PATIENT
  Age: 33 Year
  Sex: Female
  Weight: 136 kg

DRUGS (6)
  1. VIOXX [Suspect]
     Indication: MUSCULOSKELETAL DISCOMFORT
     Route: 048
     Dates: start: 20030501, end: 20040414
  2. VIOXX [Suspect]
     Route: 048
     Dates: start: 20040512, end: 20040901
  3. VIOXX [Suspect]
     Route: 048
     Dates: start: 20040512, end: 20040901
  4. VIOXX [Suspect]
     Indication: SURGERY
     Route: 048
     Dates: start: 20030501, end: 20040414
  5. VIOXX [Suspect]
     Route: 048
     Dates: start: 20040512, end: 20040901
  6. VIOXX [Suspect]
     Route: 048
     Dates: start: 20040512, end: 20040901

REACTIONS (3)
  - AORTIC ANEURYSM [None]
  - CARDIAC DISORDER [None]
  - DYSPEPSIA [None]
